FAERS Safety Report 5601372-2 (Version None)
Quarter: 2008Q1

REPORT INFORMATION
  Report Type: 
  Country: None (occurrence: None)
  Receive Date: 20080109
  Receipt Date: 20070116
  Transmission Date: 20080703
  Serious: Yes (Other)
  Sender: FDA-Public Use
  Company Number: WAES 0610USA13754

PATIENT
  Age: 51 Year
  Sex: Male
  Weight: 122.4712 kg

DRUGS (10)
  1. DECADRON [Suspect]
     Dosage: 40 MG/PO
     Route: 048
  2. TRISENOX [Suspect]
     Indication: MULTIPLE MYELOMA
  3. ASCORBIC ACID [Suspect]
  4. METHOTREXATE [Suspect]
  5. ADRIAMYCIN UNK [Suspect]
  6. CYCLOPHOSPHAMIDE [Suspect]
  7. COREG [Concomitant]
  8. COUMADIN [Concomitant]
  9. DIOVAN [Concomitant]
  10. PRAVACHOL [Concomitant]

REACTIONS (2)
  - ADVERSE EVENT [None]
  - CATARACT [None]
